FAERS Safety Report 25898332 (Version 3)
Quarter: 2025Q4

REPORT INFORMATION
  Report Type: Spontaneous
  Country: US (occurrence: US)
  Receive Date: 20251008
  Receipt Date: 20251116
  Transmission Date: 20260117
  Serious: Yes (Hospitalization)
  Sender: BIOGEN
  Company Number: US-BIOGEN-2025BI01322328

PATIENT
  Age: 26 Year
  Sex: Female

DRUGS (9)
  1. VUMERITY [Suspect]
     Active Substance: DIROXIMEL FUMARATE
     Indication: Multiple sclerosis
     Dosage: DOSAGE TEXT:231MG CAPSULE BY MOUTH TWO TIMES PER DAY FOR 7 DAYS
     Dates: start: 20250819
  2. VUMERITY [Suspect]
     Active Substance: DIROXIMEL FUMARATE
     Dosage: DOSAGE TEXT:2-231MG CAPSULE BY MOUTH TWO TIMES A DAY THEREAFTER
     Dates: start: 202508
  3. DULOXETINE [Concomitant]
     Active Substance: DULOXETINE
     Indication: Product used for unknown indication
  4. ZYRTEC [Concomitant]
     Active Substance: CETIRIZINE HYDROCHLORIDE
     Indication: Product used for unknown indication
  5. PREDNISONE [Concomitant]
     Active Substance: PREDNISONE
     Indication: Product used for unknown indication
  6. GABAPENTIN [Concomitant]
     Active Substance: GABAPENTIN
     Indication: Product used for unknown indication
  7. ONDANSETRON [Concomitant]
     Active Substance: ONDANSETRON
     Indication: Product used for unknown indication
  8. VITAMIN D [Concomitant]
     Active Substance: VITAMIN D NOS
     Indication: Product used for unknown indication
  9. PANTOPRAZOLE SODIUM [Concomitant]
     Active Substance: PANTOPRAZOLE SODIUM
     Indication: Product used for unknown indication

REACTIONS (9)
  - Multiple sclerosis relapse [Unknown]
  - Hot flush [Recovered/Resolved]
  - Nausea [Not Recovered/Not Resolved]
  - Urticaria [Recovered/Resolved]
  - Abdominal discomfort [Not Recovered/Not Resolved]
  - Diarrhoea [Not Recovered/Not Resolved]
  - Abdominal distension [Not Recovered/Not Resolved]
  - Gastrooesophageal reflux disease [Unknown]
  - Abdominal pain upper [Not Recovered/Not Resolved]

NARRATIVE: CASE EVENT DATE: 20250101
